FAERS Safety Report 8729738 (Version 1)
Quarter: 2012Q4

REPORT INFORMATION
  Report Type: 
  Country: US (occurrence: US)
  Receive Date: 20120912
  Receipt Date: 20120912
  Transmission Date: 20130627
  Serious: Yes (Death)
  Sender: FDA-Public Use
  Company Number: US-ROCHE-1099908

PATIENT
  Age: 59 Year
  Sex: Female

DRUGS (2)
  1. ACTIVASE [Suspect]
     Indication: PULMONARY EMBOLISM
     Route: 065
  2. HEPARIN [Concomitant]

REACTIONS (3)
  - Unevaluable event [Fatal]
  - Hypoxia [Fatal]
  - Acute respiratory distress syndrome [Fatal]
